FAERS Safety Report 9416436 (Version 2)
Quarter: 2013Q3

REPORT INFORMATION
  Report Type: Spontaneous
  Country: DE (occurrence: DE)
  Receive Date: 20130724
  Receipt Date: 20130801
  Transmission Date: 20140515
  Serious: Yes (Other)
  Sender: FDA-Public Use
  Company Number: DE-RANBAXY-2013RR-71529

PATIENT
  Age: 71 Year
  Sex: Female

DRUGS (4)
  1. AMOXICILLIN/CLAVULANIC ACID [Suspect]
     Indication: BRONCHITIS
     Dosage: 875/125 MG, BID
     Route: 065
  2. ASPIRIN [Interacting]
     Indication: PRODUCT USED FOR UNKNOWN INDICATION
     Dosage: 100 MG/DAY, FOR AT LEAST 4 YEARS
     Route: 065
  3. SIMVASTATIN [Concomitant]
     Indication: PRODUCT USED FOR UNKNOWN INDICATION
     Dosage: 20 MG/DAY
     Route: 065
  4. EZETIMIBE [Concomitant]
     Indication: PRODUCT USED FOR UNKNOWN INDICATION
     Dosage: 10 MG/DAY
     Route: 065

REACTIONS (2)
  - Vestibular disorder [Recovering/Resolving]
  - Drug interaction [Recovering/Resolving]
